FAERS Safety Report 9804287 (Version 1)
Quarter: 2014Q1

REPORT INFORMATION
  Report Type: Spontaneous
  Country: TN (occurrence: TN)
  Receive Date: 20140108
  Receipt Date: 20140108
  Transmission Date: 20141002
  Serious: Yes (Death, Other)
  Sender: FDA-Public Use
  Company Number: TN-PFIZER INC-2014001320

PATIENT
  Age: 11 Year
  Sex: 0

DRUGS (9)
  1. CEFTAZIDIME [Suspect]
     Indication: PYREXIA
     Dosage: UNK
  2. CEFTAZIDIME [Suspect]
     Indication: WHITE BLOOD CELL COUNT INCREASED
  3. CYTARABINE [Suspect]
     Indication: ACUTE MYELOID LEUKAEMIA RECURRENT
     Dosage: 200 MG/M2, FOR 7 DAYS
  4. ETOPOSIDE [Suspect]
     Indication: ACUTE MYELOID LEUKAEMIA RECURRENT
     Dosage: 100 MG/M2 FOR 3 DAYS
  5. MITOXANTRONE HCL [Suspect]
     Indication: ACUTE MYELOID LEUKAEMIA RECURRENT
     Dosage: 12 MG/M2 FOR 5 DAYS
  6. AMIKACIN [Suspect]
     Indication: PYREXIA
     Dosage: UNK
  7. AMIKACIN [Suspect]
     Indication: WHITE BLOOD CELL COUNT INCREASED
  8. TIENAM [Suspect]
     Indication: PYREXIA
     Dosage: UNK
  9. TARGOCID [Suspect]
     Indication: PYREXIA
     Dosage: UNK

REACTIONS (2)
  - Fungaemia [Fatal]
  - Neutropenia [Unknown]
